FAERS Safety Report 19163599 (Version 2)
Quarter: 2021Q3

REPORT INFORMATION
  Report Type: Spontaneous
  Country: IR (occurrence: IR)
  Receive Date: 20210421
  Receipt Date: 20210713
  Transmission Date: 20211014
  Serious: Yes (Life-Threatening, Hospitalization, Other)
  Sender: FDA-Public Use
  Company Number: IR-LUPIN PHARMACEUTICALS INC.-2021-04944

PATIENT
  Age: 22 Year
  Sex: Male

DRUGS (2)
  1. TRAMADOL. [Suspect]
     Active Substance: TRAMADOL
     Indication: PRODUCT USED FOR UNKNOWN INDICATION
     Dosage: 200 MILLIGRAM
     Route: 065
  2. TRAMADOL. [Suspect]
     Active Substance: TRAMADOL
     Dosage: 2 DOSAGE FORM
     Route: 065

REACTIONS (7)
  - Generalised tonic-clonic seizure [Recovering/Resolving]
  - Guillain-Barre syndrome [Recovering/Resolving]
  - Toxicity to various agents [Recovering/Resolving]
  - Respiratory distress [Recovered/Resolved]
  - Muscular weakness [Unknown]
  - Loss of consciousness [Recovering/Resolving]
  - Quadriplegia [Unknown]
